FAERS Safety Report 7834381-3 (Version None)
Quarter: 2011Q4

REPORT INFORMATION
  Report Type: 
  Country: None (occurrence: None)
  Receive Date: 20111024
  Receipt Date: 20111014
  Transmission Date: 20120403
  Serious: Yes (Hospitalization)
  Sender: FDA-Public Use
  Company Number: PHHY2011JP76944

PATIENT
  Age: 69 Year
  Sex: Female

DRUGS (3)
  1. DEXAMETHASONE [Interacting]
     Indication: ADRENAL INSUFFICIENCY
     Dosage: 0.5 MG, DAILY
     Route: 048
  2. METYRAPONE [Suspect]
     Indication: HYPERADRENOCORTICISM
     Dosage: 750 MG, DAILY
     Route: 048
  3. METYRAPONE [Interacting]
     Dosage: 1000 MG, DAILY

REACTIONS (2)
  - BLOOD CORTISOL INCREASED [None]
  - DRUG INTERACTION [None]
